FAERS Safety Report 8359326-1 (Version None)
Quarter: 2012Q2

REPORT INFORMATION
  Report Type: 
  Country: None (occurrence: None)
  Receive Date: 20120515
  Receipt Date: 20120509
  Transmission Date: 20120825
  Serious: No
  Sender: FDA-Public Use
  Company Number: US-PFIZER INC-2012113748

PATIENT
  Sex: Female
  Weight: 74.83 kg

DRUGS (2)
  1. MULTI-VITAMINS [Concomitant]
     Dosage: UNK
  2. NORVASC [Suspect]
     Indication: HYPERTENSION
     Dosage: 5 MG, 1X/DAY
     Route: 048
     Dates: start: 19950101, end: 20120509

REACTIONS (4)
  - FEELING ABNORMAL [None]
  - HOT FLUSH [None]
  - HYPERTENSION [None]
  - CHEST DISCOMFORT [None]
